FAERS Safety Report 15529847 (Version 1)
Quarter: 2018Q4

REPORT INFORMATION
  Report Type: Spontaneous
  Country: US (occurrence: US)
  Receive Date: 20181018
  Receipt Date: 20181018
  Transmission Date: 20190205
  Serious: Yes (Hospitalization, Other)
  Sender: FDA-Public Use
  Company Number: US-EPIC PHARMA LLC-2018EPC00433

PATIENT
  Age: 36 Year
  Sex: Male

DRUGS (2)
  1. HYDROCODONE AND ACETAMINOPHEN [Suspect]
     Active Substance: ACETAMINOPHEN\HYDROCODONE
     Dosage: ^TOTAL OF 5-15 G OF ACETAMINOPHEN^
     Route: 048
  2. OXYCODONE AND ACETAMINOPHEN [Suspect]
     Active Substance: ACETAMINOPHEN\OXYCODONE HYDROCHLORIDE
     Dosage: ^TOTAL OF 5-15 G OF ACETAMINOPHEN^
     Route: 048

REACTIONS (5)
  - Confusional state [Recovered/Resolved]
  - Drug abuse [Not Recovered/Not Resolved]
  - Overdose [Not Recovered/Not Resolved]
  - Lactic acidosis [Recovering/Resolving]
  - Acute hepatic failure [Recovering/Resolving]
